FAERS Safety Report 9104231 (Version 2)
Quarter: 2013Q2

REPORT INFORMATION
  Report Type: Spontaneous
  Country: US (occurrence: US)
  Receive Date: 20130219
  Receipt Date: 20130401
  Transmission Date: 20140414
  Serious: Yes (Other)
  Sender: FDA-Public Use
  Company Number: PHEH2013US003856

PATIENT
  Age: 60 Year
  Sex: Female

DRUGS (1)
  1. COMBIPATCH [Suspect]
     Indication: MENOPAUSE

REACTIONS (2)
  - Neoplasm [Unknown]
  - Drug ineffective [Unknown]
